FAERS Safety Report 6106017-3 (Version None)
Quarter: 2009Q1

REPORT INFORMATION
  Report Type: 
  Country: None (occurrence: None)
  Receive Date: 20090306
  Receipt Date: 20090219
  Transmission Date: 20090719
  Serious: Yes (Life-Threatening, Hospitalization)
  Sender: FDA-Public Use
  Company Number: ES-GENENTECH-271891

PATIENT
  Age: 26 Year
  Sex: Female

DRUGS (5)
  1. RITUXAN [Suspect]
     Indication: NON-HODGKIN'S LYMPHOMA
     Dosage: UNK
     Route: 065
     Dates: start: 20060101, end: 20070101
  2. CYCLOPHOSPHAMIDE [Suspect]
     Indication: EOSINOPHIL CATIONIC PROTEIN INCREASED
     Dosage: UNK
     Dates: start: 20070101, end: 20070101
  3. VINCRISTINE [Suspect]
     Indication: NON-HODGKIN'S LYMPHOMA
     Dosage: UNK
     Dates: start: 20070101, end: 20070101
  4. PREDNISONE [Suspect]
     Indication: EOSINOPHIL CATIONIC PROTEIN INCREASED
     Dosage: UNK
     Route: 065
     Dates: start: 20070101, end: 20070101
  5. FLUDARABINE PHOSPHATE [Suspect]
     Indication: EOSINOPHIL CATIONIC PROTEIN INCREASED
     Dosage: UNK
     Route: 065

REACTIONS (1)
  - COLITIS ULCERATIVE [None]
